FAERS Safety Report 7397916-3 (Version None)
Quarter: 2011Q2

REPORT INFORMATION
  Report Type: 
  Country: None (occurrence: None)
  Receive Date: 20110406
  Receipt Date: 20110330
  Transmission Date: 20111010
  Serious: Yes (Hospitalization, Disabling)
  Sender: FDA-Public Use
  Company Number: JP-PFIZER INC-2011055891

PATIENT
  Age: 26 Month
  Sex: Female
  Weight: 9.4 kg

DRUGS (7)
  1. PREVENAR [Suspect]
     Indication: INFECTION PROPHYLAXIS
     Dosage: 1 DF, SINGLE
     Route: 058
     Dates: start: 20110222, end: 20110222
  2. SOLU-MEDROL [Suspect]
     Indication: INTERSTITIAL LUNG DISEASE
     Dosage: 40 MG, 4X/DAY
     Route: 042
     Dates: start: 20101104, end: 20101115
  3. PLAQUENIL [Suspect]
     Indication: INTERSTITIAL LUNG DISEASE
     Dosage: 50 MG, 2X/DAY
     Route: 048
     Dates: start: 20101110, end: 20110307
  4. PREDNISOLONE [Suspect]
     Indication: INTERSTITIAL LUNG DISEASE
     Dosage: 5 MG 3X/DAY
     Route: 048
     Dates: start: 20101203, end: 20110222
  5. PREDONINE [Suspect]
     Indication: INTERSTITIAL LUNG DISEASE
     Dosage: 5 MG, 4X/DAY
     Route: 065
     Dates: start: 20101108, end: 20101202
  6. ACT-HIB [Suspect]
     Indication: INFECTION PROPHYLAXIS
     Dosage: 1 DF, SINGLE
     Route: 058
     Dates: start: 20110222, end: 20110222
  7. ACT-HIB [Suspect]
     Indication: IMMUNISATION

REACTIONS (4)
  - HYPOGLYCAEMIA [None]
  - VACCINATION SITE ERYTHEMA [None]
  - PYREXIA [None]
  - VACCINATION SITE SWELLING [None]
